FAERS Safety Report 11815987 (Version 12)
Quarter: 2017Q2

REPORT INFORMATION
  Report Type: Spontaneous
  Country: US (occurrence: US)
  Receive Date: 20151209
  Receipt Date: 20170517
  Transmission Date: 20170829
  Serious: Yes (Hospitalization)
  Sender: FDA-Public Use
  Company Number: US-ACTELION-A-US2015-128280

PATIENT
  Age: 60 Year
  Sex: Male
  Weight: 85.26 kg

DRUGS (7)
  1. BYSTOLIC [Concomitant]
     Active Substance: NEBIVOLOL HYDROCHLORIDE
     Dosage: 10 MG, UNK
  2. DIGOXIN. [Concomitant]
     Active Substance: DIGOXIN
     Dosage: 250 MCG, UNK
     Route: 048
  3. OPSUMIT [Suspect]
     Active Substance: MACITENTAN
     Indication: PULMONARY HYPERTENSION
     Dosage: 10 MG, QD
     Route: 048
     Dates: start: 20140815
  4. TREPROSTINIL DIOLAMIN [Suspect]
     Active Substance: TREPROSTINIL DIOLAMINE
     Indication: PULMONARY ARTERIAL HYPERTENSION
     Dosage: 3.125 MG, UNK
     Route: 065
     Dates: start: 2015
  5. REMODULIN [Concomitant]
     Active Substance: TREPROSTINIL
     Indication: PULMONARY ARTERIAL HYPERTENSION
     Dosage: 5 NG, UNK
     Route: 058
     Dates: start: 20160419
  6. CARDIZEM [Concomitant]
     Active Substance: DILTIAZEM HYDROCHLORIDE
  7. COUMADIN [Concomitant]
     Active Substance: WARFARIN SODIUM
     Dosage: 8 MG, UNK

REACTIONS (24)
  - Chest pain [Not Recovered/Not Resolved]
  - Dizziness [Recovered/Resolved]
  - Flatulence [Unknown]
  - Abdominal distension [Unknown]
  - Atrial fibrillation [Recovering/Resolving]
  - Urinary tract infection [Unknown]
  - Device malfunction [Unknown]
  - Diarrhoea [Unknown]
  - Vomiting [Unknown]
  - Abdominal discomfort [Unknown]
  - Pain [Unknown]
  - Oedema peripheral [Not Recovered/Not Resolved]
  - Catheter site pain [Unknown]
  - Therapy non-responder [Unknown]
  - Pulmonary arterial pressure abnormal [Recovering/Resolving]
  - Nausea [Unknown]
  - Arthralgia [Unknown]
  - Hypotension [Unknown]
  - Dehydration [Unknown]
  - Decreased appetite [Unknown]
  - Peripheral swelling [Unknown]
  - Heart rate increased [Recovering/Resolving]
  - Dyspnoea [Not Recovered/Not Resolved]
  - Supraventricular tachycardia [Recovered/Resolved]
